FAERS Safety Report 18712478 (Version 1)
Quarter: 2021Q1

REPORT INFORMATION
  Report Type: Other
  Country: US (occurrence: US)
  Receive Date: 20210107
  Receipt Date: 20210107
  Transmission Date: 20210419
  Serious: Yes (Other)
  Sender: FDA-Public Use
  Company Number: US-ROCHE-2741874

PATIENT
  Age: 71 Year
  Sex: Female
  Weight: 80.36 kg

DRUGS (5)
  1. PREDNISONE. [Concomitant]
     Active Substance: PREDNISONE
     Dosage: ONGOING: YES 5MG (4 PILLS DAILY FOR 7 DAYS, 3 PILLS DAILY FOR 7 DAYS, 2 PILLS DAILY FOR 7 DAYS, THEN
     Dates: start: 20201227
  2. METHYLSULFONYLMETHANE [Concomitant]
     Active Substance: DIMETHYL SULFONE
  3. ACTEMRA [Suspect]
     Active Substance: TOCILIZUMAB
     Indication: RHEUMATOID ARTHRITIS
     Dosage: ONGOING: YES
     Route: 042
     Dates: start: 2008
  4. ACTEMRA [Suspect]
     Active Substance: TOCILIZUMAB
     Route: 042
  5. ZOLOFT [Concomitant]
     Active Substance: SERTRALINE HYDROCHLORIDE

REACTIONS (4)
  - White blood cell count decreased [Not Recovered/Not Resolved]
  - Myalgia [Unknown]
  - Mobility decreased [Recovering/Resolving]
  - Depression [Unknown]

NARRATIVE: CASE EVENT DATE: 202010
